FAERS Safety Report 10698533 (Version 1)
Quarter: 2014Q4

REPORT INFORMATION
  Report Type: Spontaneous
  Country: US (occurrence: None)
  Receive Date: 20141223
  Receipt Date: 20141223
  Transmission Date: 20150529
  Serious: No
  Sender: FDA-Public Use
  Company Number: 1000071046

PATIENT
  Age: 64 Year
  Sex: Female

DRUGS (11)
  1. SENOKOT-S [Concomitant]
     Active Substance: DOCUSATE SODIUM\SENNOSIDES
  2. CELEBREX [Concomitant]
     Active Substance: CELECOXIB
  3. MIRALAX (POLYETHYLENE GLYCOL) [Concomitant]
  4. ULORIC [Concomitant]
     Active Substance: FEBUXOSTAT
  5. LANTUS [Concomitant]
     Active Substance: INSULIN GLARGINE
  6. BUMEX (BUMETANIDE) [Concomitant]
  7. LINZESS [Suspect]
     Active Substance: LINACLOTIDE
     Indication: CONSTIPATION
     Route: 048
     Dates: start: 201408, end: 201408
  8. GABAPENTIN. [Concomitant]
     Active Substance: GABAPENTIN
  9. VALIUM [Concomitant]
     Active Substance: DIAZEPAM
  10. SPIRONOLACTONE. [Concomitant]
     Active Substance: SPIRONOLACTONE
  11. HUMALOG [Concomitant]
     Active Substance: INSULIN LISPRO

REACTIONS (3)
  - Haemorrhoidal haemorrhage [None]
  - Diarrhoea [None]
  - Off label use [None]

NARRATIVE: CASE EVENT DATE: 201408
